FAERS Safety Report 8889928 (Version 1)
Quarter: 2012Q4

REPORT INFORMATION
  Report Type: 
  Country: AT (occurrence: AT)
  Receive Date: 20121107
  Receipt Date: 20121107
  Transmission Date: 20130627
  Serious: Yes (Hospitalization)
  Sender: FDA-Public Use
  Company Number: AT-009507513-2012SP027880

PATIENT
  Age: 83 Year
  Sex: Female
  Weight: 75 kg

DRUGS (3)
  1. SUGAMMADEX SODIUM [Suspect]
     Dosage: 4 mg/kg, ONCE
     Route: 042
     Dates: start: 20120305, end: 20120305
  2. SINTROM [Concomitant]
     Indication: DEEP VEIN THROMBOSIS
     Dosage: UPDATE (25-MAY-2012):
     Route: 048
     Dates: start: 20120315
  3. LOVENOX [Concomitant]
     Indication: THROMBOSIS PROPHYLAXIS
     Dosage: UPDATE (25-MAY-2012):
     Route: 058
     Dates: start: 20120310, end: 20120316

REACTIONS (2)
  - Haematoma [Recovered/Resolved]
  - Deep vein thrombosis [Not Recovered/Not Resolved]
